FAERS Safety Report 6647015-0 (Version None)
Quarter: 2010Q1

REPORT INFORMATION
  Report Type: 
  Country: None (occurrence: None)
  Receive Date: 20100323
  Receipt Date: 20100106
  Transmission Date: 20100710
  Serious: No
  Sender: FDA-Public Use
  Company Number: A0838018A

PATIENT
  Age: 26 Year
  Sex: Male

DRUGS (1)
  1. LAMICTAL CD [Suspect]
     Route: 048
     Dates: start: 20091201

REACTIONS (1)
  - HYPERSENSITIVITY [None]
